FAERS Safety Report 25929987 (Version 1)
Quarter: 2025Q4

REPORT INFORMATION
  Report Type: Spontaneous
  Country: CA (occurrence: CA)
  Receive Date: 20251016
  Receipt Date: 20251016
  Transmission Date: 20260117
  Serious: Yes (Death, Other)
  Sender: MERCK SHARP & DOHME LLC
  Company Number: CA-009507513-2337943

PATIENT

DRUGS (1)
  1. PEMBROLIZUMAB [Suspect]
     Active Substance: PEMBROLIZUMAB
     Route: 065

REACTIONS (6)
  - Malignant neoplasm progression [Fatal]
  - Hypothyroidism [Unknown]
  - Thyroiditis [Unknown]
  - Enteritis [Unknown]
  - Gastritis [Unknown]
  - Thrombocytopenia [Not Recovered/Not Resolved]
